FAERS Safety Report 15865791 (Version 2)
Quarter: 2019Q1

REPORT INFORMATION
  Report Type: Report from Study
  Country: None (occurrence: IL)
  Receive Date: 20190125
  Receipt Date: 20190130
  Transmission Date: 20190417
  Serious: Yes (Hospitalization)
  Sender: FDA-Public Use
  Company Number: IL-ABBVIE-19S-082-2633414-00

PATIENT
  Sex: Female

DRUGS (1)
  1. DUODOPA [Suspect]
     Active Substance: CARBIDOPA\LEVODOPA
     Indication: PARKINSON^S DISEASE
     Dosage: CURRENT MD- 12 ML, CR- 1.8 ML/ HOUR, CURRENT ED- 1 ML
     Route: 050
     Dates: start: 20170706

REACTIONS (3)
  - Intestinal obstruction [Recovering/Resolving]
  - Intestinal perforation [Recovering/Resolving]
  - Device connection issue [Recovering/Resolving]
